FAERS Safety Report 15152687 (Version 2)
Quarter: 2018Q3

REPORT INFORMATION
  Report Type: Report from Study
  Country: DE (occurrence: DE)
  Receive Date: 20180717
  Receipt Date: 20180821
  Transmission Date: 20181010
  Serious: Yes (Other)
  Sender: FDA-Public Use
  Company Number: DE-SUN PHARMACEUTICAL INDUSTRIES LTD-2018RR-174333

PATIENT
  Age: 19 Year
  Sex: Male

DRUGS (5)
  1. GEMCITABINE [Suspect]
     Active Substance: GEMCITABINE\GEMCITABINE HYDROCHLORIDE
     Indication: SYNOVIAL SARCOMA
     Dosage: 800 MG/M2
     Route: 042
  2. GEFITINIB. [Suspect]
     Active Substance: GEFITINIB
     Indication: SYNOVIAL SARCOMA
     Dosage: 250 MG
     Route: 048
  3. ETOPOSIDE. [Suspect]
     Active Substance: ETOPOSIDE
     Indication: SYNOVIAL SARCOMA
     Dosage: 2 X 25 MG/M2
     Route: 048
  4. ICLUSIG [Suspect]
     Active Substance: PONATINIB
     Indication: SYNOVIAL SARCOMA
     Dosage: 30 MG, UNK
     Route: 048
  5. PONATINIB [Suspect]
     Active Substance: PONATINIB
     Indication: SYNOVIAL SARCOMA
     Dosage: 30 MG
     Route: 048

REACTIONS (6)
  - Neutropenia [Unknown]
  - Lymphopenia [Unknown]
  - Off label use [Unknown]
  - Thrombocytopenia [Unknown]
  - Anaemia [Unknown]
  - Disease progression [Unknown]
